FAERS Safety Report 8562483-5 (Version None)
Quarter: 2012Q3

REPORT INFORMATION
  Report Type: 
  Country: None (occurrence: None)
  Receive Date: 20120802
  Receipt Date: 20120628
  Transmission Date: 20120928
  Serious: No
  Sender: FDA-Public Use
  Company Number: GB-AMGEN-USASP2012042436

PATIENT
  Sex: Male

DRUGS (1)
  1. ENBREL [Suspect]
     Indication: PSORIASIS
     Dosage: UNK, 2X/WEEK

REACTIONS (4)
  - DRUG ADMINISTRATION ERROR [None]
  - MALAISE [None]
  - HERPES ZOSTER [None]
  - INJECTION SITE PAIN [None]
